FAERS Safety Report 23948678 (Version 4)
Quarter: 2024Q3

REPORT INFORMATION
  Report Type: Spontaneous
  Country: CO (occurrence: CO)
  Receive Date: 20240607
  Receipt Date: 20240701
  Transmission Date: 20241016
  Serious: Yes (Hospitalization)
  Sender: ORPHALAN
  Company Number: CO-ORPHALAN-CO-ORP-24-00094

PATIENT

DRUGS (1)
  1. TRIENTINE TETRAHYDROCHLORIDE [Suspect]
     Active Substance: TRIENTINE TETRAHYDROCHLORIDE
     Indication: Hepato-lenticular degeneration
     Dosage: 150 MILLIGRAM, BID
     Route: 048
     Dates: start: 20240420, end: 20240530

REACTIONS (5)
  - Aggression [Recovered/Resolved]
  - Feeling of despair [Recovered/Resolved]
  - Anxiety [Recovered/Resolved]
  - Defiant behaviour [Recovered/Resolved]
  - Off label use [Recovered/Resolved]

NARRATIVE: CASE EVENT DATE: 20240420
